FAERS Safety Report 5100968-4 (Version None)
Quarter: 2006Q3

REPORT INFORMATION
  Report Type: 
  Country: None (occurrence: None)
  Receive Date: 20060911
  Receipt Date: 20060626
  Transmission Date: 20061208
  Serious: Yes (Other)
  Sender: FDA-Public Use
  Company Number: CA-BAYER-200612673GDS

PATIENT
  Age: 27 Year
  Sex: Female

DRUGS (2)
  1. AVELOX [Suspect]
     Indication: SINUSITIS
     Dosage: TOTAL DAILY DOSE: 400 MG  UNIT DOSE: 400 MG
     Route: 048
     Dates: start: 20060610, end: 20060614
  2. NASONEX 50MCG SPRAY [Concomitant]
     Indication: DRUG USE FOR UNKNOWN INDICATION
     Route: 065

REACTIONS (8)
  - BURNING SENSATION [None]
  - CHEILITIS [None]
  - DIARRHOEA [None]
  - GLOSSITIS [None]
  - MOUTH PLAQUE [None]
  - NAUSEA [None]
  - RASH MACULO-PAPULAR [None]
  - VOMITING [None]
